FAERS Safety Report 6129829-9 (Version None)
Quarter: 2009Q1

REPORT INFORMATION
  Report Type: 
  Country: None (occurrence: None)
  Receive Date: 20090324
  Receipt Date: 20090312
  Transmission Date: 20090719
  Serious: Yes (Hospitalization, Other)
  Sender: FDA-Public Use
  Company Number: PHHY2008DE21496

PATIENT
  Sex: Female
  Weight: 73 kg

DRUGS (5)
  1. ZOMETA [Suspect]
     Indication: PROPHYLAXIS
     Dosage: 4 MG EVERY 4 WEEKS
     Route: 042
     Dates: start: 20051229, end: 20070906
  2. IBUPROFEN TABLETS [Concomitant]
     Dosage: 800 MG DAILY
     Dates: start: 20051130
  3. NEXAVAR [Concomitant]
     Dosage: 800 MG DAILY (1/2-1/2-0)
     Dates: start: 20061012
  4. ASPISOL [Concomitant]
     Indication: CEREBROVASCULAR INSUFFICIENCY
     Dosage: 500 MG
     Route: 042
     Dates: start: 20070624, end: 20070628
  5. AGGRENOX [Concomitant]
     Indication: CEREBROVASCULAR INSUFFICIENCY
     Dosage: UNK
     Dates: start: 20070628

REACTIONS (3)
  - CEREBROVASCULAR ACCIDENT [None]
  - DYSLALIA [None]
  - SPEECH DISORDER [None]
